FAERS Safety Report 11147209 (Version 2)
Quarter: 2015Q3

REPORT INFORMATION
  Report Type: Spontaneous
  Country: US (occurrence: US)
  Receive Date: 20150528
  Receipt Date: 20150810
  Transmission Date: 20151125
  Serious: No
  Sender: FDA-Public Use
  Company Number: US-GLAXOSMITHKLINE-US2015071975

PATIENT
  Sex: Male

DRUGS (3)
  1. ESBRIET [Concomitant]
     Active Substance: PIRFENIDONE
  2. ADVAIR DISKUS [Suspect]
     Active Substance: FLUTICASONE PROPIONATE\SALMETEROL XINAFOATE
     Indication: IDIOPATHIC PULMONARY FIBROSIS
     Dosage: 1 PUFF(S), BID
     Route: 055
  3. OXYGEN. [Concomitant]
     Active Substance: OXYGEN

REACTIONS (3)
  - Product quality issue [Unknown]
  - Drug ineffective [Not Recovered/Not Resolved]
  - Dyspnoea [Not Recovered/Not Resolved]
